FAERS Safety Report 16606987 (Version 1)
Quarter: 2019Q3

REPORT INFORMATION
  Report Type: Spontaneous
  Country: US (occurrence: US)
  Receive Date: 20190606
  Receipt Date: 20190606
  Transmission Date: 20191004
  Serious: No
  Sender: FDA-Public Use
  Company Number: None

PATIENT
  Age: 62 Year
  Sex: Female

DRUGS (1)
  1. GLATIRAMER PFS INJ (30/BOX) 40MG/ML MYLAN [Suspect]
     Active Substance: GLATIRAMER
     Indication: MULTIPLE SCLEROSIS
     Route: 058
     Dates: start: 201801

REACTIONS (3)
  - Burning sensation [None]
  - Dizziness [None]
  - Chest discomfort [None]

NARRATIVE: CASE EVENT DATE: 20190501
